FAERS Safety Report 8184135-6 (Version None)
Quarter: 2012Q1

REPORT INFORMATION
  Report Type: 
  Country: None (occurrence: None)
  Receive Date: 20120305
  Receipt Date: 20120228
  Transmission Date: 20120608
  Serious: Yes (Hospitalization, Other)
  Sender: FDA-Public Use
  Company Number: JP-PFIZER INC-2012033644

PATIENT
  Age: 36 Year
  Sex: Female

DRUGS (1)
  1. ZOLOFT [Suspect]
     Indication: ANXIETY
     Dosage: 25 MG/DAY
     Route: 048
     Dates: start: 20120203, end: 20120201

REACTIONS (4)
  - VOMITING [None]
  - ANXIETY DISORDER [None]
  - MALAISE [None]
  - DEHYDRATION [None]
